FAERS Safety Report 20232867 (Version 1)
Quarter: 2021Q4

REPORT INFORMATION
  Report Type: Spontaneous
  Country: US (occurrence: None)
  Receive Date: 20211223
  Receipt Date: 20211223
  Transmission Date: 20220303
  Serious: No
  Sender: FDA-Public Use
  Company Number: None

PATIENT
  Age: 4 Year
  Sex: Female

DRUGS (3)
  1. EPIDIOLEX [Suspect]
     Active Substance: CANNABIDIOL
     Indication: Severe myoclonic epilepsy of infancy
     Dosage: FREQUENCY : TWICE A DAY;?
     Route: 048
     Dates: start: 20201006
  2. ONFI [Concomitant]
     Active Substance: CLOBAZAM
  3. DIASTAT ACUDIAL [Concomitant]
     Active Substance: DIAZEPAM

REACTIONS (4)
  - Seizure [None]
  - Loss of consciousness [None]
  - Staring [None]
  - Product dose omission issue [None]

NARRATIVE: CASE EVENT DATE: 20211213
